FAERS Safety Report 18770174 (Version 1)
Quarter: 2021Q1

REPORT INFORMATION
  Report Type: Spontaneous
  Country: US (occurrence: US)
  Receive Date: 20210121
  Receipt Date: 20210121
  Transmission Date: 20210419
  Serious: No
  Sender: FDA-Public Use
  Company Number: US-ZOGENIX INTERNATIONAL LIMITED, A WHOLLY OWNED SUBSIDIARY OF ZOGENIX, INC.-2020ZX000081

PATIENT
  Sex: Female
  Weight: 18.16 kg

DRUGS (4)
  1. FINTEPLA [Suspect]
     Active Substance: FENFLURAMINE
     Indication: SEIZURE
     Route: 048
     Dates: start: 20200828
  2. DEPAKOTE [Concomitant]
     Active Substance: DIVALPROEX SODIUM
     Indication: SEIZURE
     Route: 048
  3. FINTEPLA [Suspect]
     Active Substance: FENFLURAMINE
     Indication: SEVERE MYOCLONIC EPILEPSY OF INFANCY
     Route: 048
     Dates: start: 20190912, end: 20200828
  4. EPIDIOLEX [Concomitant]
     Active Substance: CANNABIDIOL
     Indication: SEIZURE
     Route: 048

REACTIONS (1)
  - Decreased appetite [Not Recovered/Not Resolved]
